FAERS Safety Report 9799691 (Version 2)
Quarter: 2014Q1

REPORT INFORMATION
  Report Type: Spontaneous
  Country: US (occurrence: US)
  Receive Date: 20140106
  Receipt Date: 20140106
  Transmission Date: 20141002
  Serious: No
  Sender: FDA-Public Use
  Company Number: US-GILEAD-2010-0031614

PATIENT
  Age: 72 Year
  Sex: Female
  Weight: 108.86 kg

DRUGS (13)
  1. LETAIRIS [Suspect]
     Indication: PULMONARY ARTERIAL HYPERTENSION
     Route: 048
     Dates: start: 20100727
  2. REVATIO [Concomitant]
  3. AMLODIPINE [Concomitant]
  4. QUINAPRIL [Concomitant]
  5. METOPROLOL [Concomitant]
  6. FUROSEMIDE [Concomitant]
  7. JANUVIA [Concomitant]
  8. GLIPIZIDE [Concomitant]
  9. SIMVASTATIN [Concomitant]
  10. LEVOTHYROXINE [Concomitant]
  11. MAGOX [Concomitant]
  12. CORICIDIN [Concomitant]
  13. FOLIC ACID [Concomitant]

REACTIONS (1)
  - Dyspnoea [Recovering/Resolving]
